FAERS Safety Report 22168679 (Version 1)
Quarter: 2023Q2

REPORT INFORMATION
  Report Type: Spontaneous
  Country: CN (occurrence: CN)
  Receive Date: 20230403
  Receipt Date: 20230403
  Transmission Date: 20230722
  Serious: Yes (Other)
  Sender: FDA-Public Use
  Company Number: CN-BoehringerIngelheim-2023-BI-228811

PATIENT
  Age: 75 Year
  Sex: Male
  Weight: 50 kg

DRUGS (4)
  1. ALTEPLASE [Suspect]
     Active Substance: ALTEPLASE
     Indication: Cerebral infarction
     Route: 042
     Dates: start: 20230318, end: 20230318
  2. ALTEPLASE [Suspect]
     Active Substance: ALTEPLASE
     Route: 042
     Dates: start: 20230318, end: 20230318
  3. WATER [Concomitant]
     Active Substance: WATER
     Indication: Cerebral infarction
     Route: 042
     Dates: start: 20230318, end: 20230318
  4. WATER [Concomitant]
     Active Substance: WATER
     Route: 042
     Dates: start: 20230318, end: 20230318

REACTIONS (2)
  - Upper gastrointestinal haemorrhage [Recovered/Resolved]
  - Vomiting [Recovered/Resolved]

NARRATIVE: CASE EVENT DATE: 20230318
